FAERS Safety Report 8234763-4 (Version None)
Quarter: 2012Q1

REPORT INFORMATION
  Report Type: 
  Country: None (occurrence: None)
  Receive Date: 20120307
  Receipt Date: 20091028
  Transmission Date: 20120608
  Serious: Yes (Other)
  Sender: FDA-Public Use
  Company Number: PHEH2009US14712

PATIENT

DRUGS (1)
  1. AFINITOR [Suspect]
     Dates: start: 20090601

REACTIONS (2)
  - PLEURAL EFFUSION [None]
  - IMPLANTABLE PLEURAL CATHETER INSERTION [None]
